FAERS Safety Report 4380869-X (Version None)
Quarter: 2004Q2

REPORT INFORMATION
  Report Type: 
  Country: None (occurrence: None)
  Receive Date: 20040616
  Receipt Date: 20040601
  Transmission Date: 20050107
  Serious: Yes (Hospitalization, Other)
  Sender: FDA-Public Use
  Company Number: JP_040503111

PATIENT
  Age: 69 Year
  Sex: Male
  Weight: 76 kg

DRUGS (5)
  1. PERGOLIDE (PERGOLIDE MESYLATE) [Suspect]
     Indication: PARKINSON'S DISEASE
     Dosage: 1250 UG DAY
     Dates: start: 20010801, end: 20040512
  2. CABERGOLINE [Concomitant]
  3. MAGNESIUM OXIDE [Concomitant]
  4. EC DOPARL [Concomitant]
  5. ZESTRIL [Concomitant]

REACTIONS (25)
  - ANOREXIA [None]
  - ATRIAL FIBRILLATION [None]
  - BLOOD PH INCREASED [None]
  - CARDIAC FAILURE [None]
  - CARDIAC VALVE DISEASE [None]
  - CARDIOMEGALY [None]
  - CAROTID ARTERY DISEASE [None]
  - CHEST PAIN [None]
  - DECREASED ACTIVITY [None]
  - DIASTOLIC DYSFUNCTION [None]
  - DYSPNOEA [None]
  - EYE PAIN [None]
  - LOSS OF CONSCIOUSNESS [None]
  - MALAISE [None]
  - OEDEMA PERIPHERAL [None]
  - ORTHOSTATIC HYPOTENSION [None]
  - PLEURAL EFFUSION [None]
  - PNEUMONIA [None]
  - PORIOMANIA [None]
  - PULMONARY VALVE INCOMPETENCE [None]
  - SOMNOLENCE [None]
  - TACHYCARDIA [None]
  - THERAPY NON-RESPONDER [None]
  - TRICUSPID VALVE INCOMPETENCE [None]
  - WEIGHT INCREASED [None]
